FAERS Safety Report 24679144 (Version 1)
Quarter: 2024Q4

REPORT INFORMATION
  Report Type: Spontaneous
  Country: MX (occurrence: MX)
  Receive Date: 20241129
  Receipt Date: 20241129
  Transmission Date: 20250115
  Serious: Yes (Other)
  Sender: ALEXION PHARMACEUTICALS
  Company Number: MX-AstraZeneca-CH-00751411AP

PATIENT
  Weight: 65 kg

DRUGS (2)
  1. SYMBICORT [Suspect]
     Active Substance: BUDESONIDE\FORMOTEROL FUMARATE DIHYDRATE
     Indication: Asthma
     Dosage: UNK MICROGRAM, QD
  2. INNOVAIR [Concomitant]
     Active Substance: BECLOMETHASONE DIPROPIONATE\FORMOTEROL
     Dosage: 1 DOSAGE FORM, Q12H

REACTIONS (5)
  - Drug ineffective [Recovering/Resolving]
  - Asthma [Unknown]
  - Device malfunction [Unknown]
  - Device delivery system issue [Unknown]
  - Product dose omission issue [Unknown]
